FAERS Safety Report 23197783 (Version 1)
Quarter: 2023Q4

REPORT INFORMATION
  Report Type: Report from Study
  Country: MX (occurrence: MX)
  Receive Date: 20231117
  Receipt Date: 20231117
  Transmission Date: 20240110
  Serious: Yes (Hospitalization)
  Sender: FDA-Public Use
  Company Number: MX-TAKEDA-2023TUS110985

PATIENT
  Age: 19 Year
  Sex: Male

DRUGS (1)
  1. IDURSULFASE [Suspect]
     Active Substance: IDURSULFASE
     Indication: Mucopolysaccharidosis II
     Dosage: 14.5 MILLIGRAM, 1/WEEK
     Route: 042

REACTIONS (2)
  - Feeding intolerance [Unknown]
  - Localised oedema [Recovering/Resolving]

NARRATIVE: CASE EVENT DATE: 20231108
